FAERS Safety Report 17803261 (Version 1)
Quarter: 2020Q2

REPORT INFORMATION
  Report Type: Spontaneous
  Country: US (occurrence: US)
  Receive Date: 20200519
  Receipt Date: 20200519
  Transmission Date: 20200714
  Serious: Yes (Other)
  Sender: FDA-Public Use
  Company Number: US-PFIZER INC-2020196722

PATIENT
  Age: 25 Year
  Sex: Male
  Weight: 79.38 kg

DRUGS (1)
  1. EFEXOR [Suspect]
     Active Substance: VENLAFAXINE HYDROCHLORIDE
     Indication: DEPRESSION
     Dosage: 37.5 MG, 1X/DAY
     Route: 048
     Dates: start: 201907

REACTIONS (7)
  - Confusional state [Unknown]
  - Vertigo [Unknown]
  - Drug dependence [Unknown]
  - Paraesthesia [Unknown]
  - Drug ineffective [Unknown]
  - Fatigue [Unknown]
  - Anger [Unknown]
